FAERS Safety Report 5565884-2 (Version None)
Quarter: 2007Q4

REPORT INFORMATION
  Report Type: 
  Country: None (occurrence: None)
  Receive Date: 20071213
  Receipt Date: 20071129
  Transmission Date: 20080405
  Serious: Yes (Hospitalization)
  Sender: FDA-Public Use
  Company Number: 2007BI023371

PATIENT
  Age: 6 Year
  Sex: Female

DRUGS (3)
  1. AVONEX [Suspect]
     Indication: RELAPSING-REMITTING MULTIPLE SCLEROSIS
     Dosage: 30 UG; QW; IM
     Route: 030
     Dates: start: 20071006, end: 20071026
  2. FOSAMAC [Concomitant]
  3. GASTER [Concomitant]

REACTIONS (3)
  - CONVULSION [None]
  - FEBRILE CONVULSION [None]
  - INFLUENZA LIKE ILLNESS [None]
